FAERS Safety Report 8545793-7 (Version None)
Quarter: 2012Q3

REPORT INFORMATION
  Report Type: 
  Country: None (occurrence: None)
  Receive Date: 20120727
  Receipt Date: 20120719
  Transmission Date: 20120928
  Serious: Yes (Other)
  Sender: FDA-Public Use
  Company Number: CN-BAXTER-2012BAX012446

PATIENT
  Sex: Male
  Weight: 65 kg

DRUGS (1)
  1. SODIUM CHLORIDE INJ [Suspect]
     Dates: start: 20110616, end: 20110616

REACTIONS (6)
  - CHEST DISCOMFORT [None]
  - CHILLS [None]
  - NAUSEA [None]
  - HYPERPYREXIA [None]
  - PALPITATIONS [None]
  - VOMITING [None]
